FAERS Safety Report 9844277 (Version 1)
Quarter: 2014Q1

REPORT INFORMATION
  Report Type: Spontaneous
  Country: US (occurrence: US)
  Receive Date: 20140127
  Receipt Date: 20140127
  Transmission Date: 20141002
  Serious: No
  Sender: FDA-Public Use
  Company Number: US-009507513-1401USA010876

PATIENT
  Sex: Female

DRUGS (1)
  1. MONTELUKAST SODIUM [Suspect]
     Route: 048

REACTIONS (2)
  - Erythema [Unknown]
  - Hypersensitivity [Unknown]
